FAERS Safety Report 5604796-2 (Version None)
Quarter: 2008Q1

REPORT INFORMATION
  Report Type: 
  Country: None (occurrence: None)
  Receive Date: 20080128
  Receipt Date: 20080114
  Transmission Date: 20080703
  Serious: Yes (Death, Other)
  Sender: FDA-Public Use
  Company Number: US-ROCHE-541431

PATIENT
  Age: 60 Year
  Sex: Female

DRUGS (2)
  1. CAPECITABINE [Suspect]
     Route: 065
  2. CAPECITABINE [Suspect]
     Dosage: POTENTIAL DEATH.
     Route: 065

REACTIONS (3)
  - DIARRHOEA [None]
  - DRUG TOXICITY [None]
  - VOMITING [None]
